FAERS Safety Report 23972976 (Version 2)
Quarter: 2024Q3

REPORT INFORMATION
  Report Type: Spontaneous
  Country: DE (occurrence: DE)
  Receive Date: 20240613
  Receipt Date: 20240806
  Transmission Date: 20241017
  Serious: Yes (Hospitalization, Other)
  Sender: FRESENIUS KABI
  Company Number: DE-009507513-2405DEU009373

PATIENT
  Age: 81 Year
  Sex: Male
  Weight: 75 kg

DRUGS (31)
  1. CARBOPLATIN [Suspect]
     Active Substance: CARBOPLATIN
     Indication: Bronchial carcinoma
     Dosage: 350 MG
     Dates: start: 202403, end: 20240418
  2. CARBOPLATIN [Suspect]
     Active Substance: CARBOPLATIN
  3. PEMETREXED [Suspect]
     Active Substance: PEMETREXED
     Indication: Bronchial carcinoma
     Dosage: UNK
     Dates: start: 202403, end: 20240418
  4. PEMETREXED [Suspect]
     Active Substance: PEMETREXED
  5. KEYTRUDA [Suspect]
     Active Substance: PEMBROLIZUMAB
     Indication: Palliative care
     Dosage: 200 MILLIGRAM, Q3W?FORM: SOLUTION FOR INJECTION
     Route: 042
     Dates: end: 20240418
  6. KEYTRUDA [Suspect]
     Active Substance: PEMBROLIZUMAB
     Indication: Bronchial carcinoma
     Dosage: FOA-SOLUTION FOR INJECTION
     Route: 042
  7. NALOXONE HYDROCHLORIDE\OXYCODONE HYDROCHLORIDE [Concomitant]
     Active Substance: NALOXONE HYDROCHLORIDE\OXYCODONE HYDROCHLORIDE
     Indication: Product used for unknown indication
     Dosage: 10 MILLIGRAM?FORM: TABLET
     Route: 048
  8. NALOXONE HYDROCHLORIDE\OXYCODONE HYDROCHLORIDE [Concomitant]
     Active Substance: NALOXONE HYDROCHLORIDE\OXYCODONE HYDROCHLORIDE
     Dosage: 5 MILLIGRAM?FORM: TABLET
     Route: 048
  9. NALOXONE HYDROCHLORIDE\OXYCODONE HYDROCHLORIDE [Concomitant]
     Active Substance: NALOXONE HYDROCHLORIDE\OXYCODONE HYDROCHLORIDE
     Dosage: 20 MILLIGRAM?FORM: TABLET
     Route: 048
  10. NALOXONE HYDROCHLORIDE\OXYCODONE HYDROCHLORIDE [Concomitant]
     Active Substance: NALOXONE HYDROCHLORIDE\OXYCODONE HYDROCHLORIDE
     Dosage: 2.5 MILLIGRAM?FORM: TABLET
     Route: 048
  11. GRANISETRON STADA [Concomitant]
     Indication: Product used for unknown indication
     Dosage: FORM: COATED TABLET
     Route: 048
  12. PREGABALIN [Concomitant]
     Active Substance: PREGABALIN
     Indication: Product used for unknown indication
     Dosage: IF NECESSARY INCREASE TO 50MG?FORM: CAPSULE
     Route: 048
  13. MCP STADA [Concomitant]
     Indication: Product used for unknown indication
     Dosage: FORM: TABLET
     Route: 048
  14. METAMIZOLE [Concomitant]
     Active Substance: METAMIZOLE
     Indication: Product used for unknown indication
     Dosage: ORAL DROPS
     Route: 048
  15. LOPERAMID STADA [Concomitant]
     Indication: Product used for unknown indication
     Dosage: FORM: CAPSULE
  16. DULCOLAX NP [Concomitant]
     Indication: Product used for unknown indication
  17. FOLIC ACID [Concomitant]
     Active Substance: FOLIC ACID
     Indication: Product used for unknown indication
     Dosage: 5 MILLIGRAM UNTIL THE END OF PACKAGE
     Route: 048
  18. PANTOPRAZOL AAA [Concomitant]
     Indication: Product used for unknown indication
     Dosage: FORM: TABLET
     Route: 048
  19. CALCIUM CARBONATE\CHOLECALCIFEROL [Concomitant]
     Active Substance: CALCIUM CARBONATE\CHOLECALCIFEROL
     Indication: Product used for unknown indication
     Dosage: FORM: TABLET, CHEWABLE
     Route: 048
  20. INNOHEP [Concomitant]
     Active Substance: TINZAPARIN SODIUM
     Indication: Product used for unknown indication
     Dosage: FORM: SOLUTION FOR INJECTION
  21. ALLOPURINOL [Concomitant]
     Active Substance: ALLOPURINOL
     Indication: Product used for unknown indication
     Dosage: UNK?FORM: TABLET
     Route: 048
  22. EMEND [Concomitant]
     Active Substance: APREPITANT
     Indication: Product used for unknown indication
     Dosage: 80 MILLIGRAM?FORM: CAPSULE
     Route: 048
  23. EMEND [Concomitant]
     Active Substance: APREPITANT
     Dosage: 125 MILLIGRAM?FORM: CAPSULE
     Route: 048
  24. DEXAMETHASONE [Concomitant]
     Active Substance: DEXAMETHASONE
     Indication: Product used for unknown indication
     Dosage: UNK?FORM: TABLET
     Route: 048
  25. FORTIMEL COMPACT [Concomitant]
     Indication: Product used for unknown indication
  26. POLYETHYLENE GLYCOL 3350\POTASSIUM CHLORIDE\SODIUM BICARBONATE\SODIUM [Concomitant]
     Active Substance: POLYETHYLENE GLYCOL 3350\POTASSIUM CHLORIDE\SODIUM BICARBONATE\SODIUM CHLORIDE
     Indication: Product used for unknown indication
     Dosage: FORM: ORAL POWDER
     Route: 048
  27. HCT RATIOPHARM [Concomitant]
     Indication: Product used for unknown indication
     Dosage: FORM: TABLET
     Route: 048
  28. OXYCODONE HYDROCHLORIDE [Concomitant]
     Active Substance: OXYCODONE HYDROCHLORIDE
     Indication: Product used for unknown indication
     Dosage: UNK, PRN (ON DEMAND)?FORM: COATED TABLET
     Route: 048
  29. VITAMIN B12 [Concomitant]
     Active Substance: CYANOCOBALAMIN
     Indication: Product used for unknown indication
     Dosage: 1000 MICROGRAM; EVERY 3 MONTHS
  30. SIMVASTATIN [Concomitant]
     Active Substance: SIMVASTATIN
     Indication: Product used for unknown indication
     Dosage: FORM: TABLET
     Route: 048
  31. AMPHO-MORONAL [Concomitant]
     Active Substance: AMPHOTERICIN B
     Indication: Product used for unknown indication

REACTIONS (8)
  - Pulmonary embolism [Unknown]
  - Malignant neoplasm progression [Unknown]
  - Immune-mediated pancytopenia [Unknown]
  - Immune thrombocytopenia [Not Recovered/Not Resolved]
  - Haemolytic anaemia [Recovered/Resolved]
  - Leukopenia [Recovered/Resolved]
  - Pancytopenia [Unknown]
  - Thrombocytopenia [Recovering/Resolving]

NARRATIVE: CASE EVENT DATE: 20240301
